FAERS Safety Report 17103494 (Version 1)
Quarter: 2019Q4

REPORT INFORMATION
  Report Type: Spontaneous
  Country: US (occurrence: US)
  Receive Date: 20191202
  Receipt Date: 20191202
  Transmission Date: 20200122
  Serious: Yes (Hospitalization)
  Sender: FDA-Public Use
  Company Number: None

PATIENT
  Age: 84 Year
  Sex: Female
  Weight: 66.7 kg

DRUGS (4)
  1. OMLESARTAN 40MG BID [Concomitant]
  2. NEBIVOLOL 2.5MG DAILY [Concomitant]
  3. PERCOCET 5/325MG Q 4 HOUS PRN [Concomitant]
  4. DABIGATRAN [Suspect]
     Active Substance: DABIGATRAN
     Indication: ATRIAL FIBRILLATION
     Route: 048

REACTIONS (7)
  - Fall [None]
  - Musculoskeletal pain [None]
  - Renal failure [None]
  - Head injury [None]
  - White blood cell count increased [None]
  - Arthralgia [None]
  - Atrial fibrillation [None]

NARRATIVE: CASE EVENT DATE: 20150717
